FAERS Safety Report 9150041 (Version 2)
Quarter: 2013Q1

REPORT INFORMATION
  Report Type: Report from Study
  Country: BE (occurrence: BE)
  Receive Date: 20130308
  Receipt Date: 20130318
  Transmission Date: 20140127
  Serious: Yes (Hospitalization)
  Sender: FDA-Public Use
  Company Number: PHHY2013BE022796

PATIENT
  Age: 45 Year
  Sex: Female
  Weight: 55.9 kg

DRUGS (3)
  1. FTY 720 [Suspect]
     Indication: MULTIPLE SCLEROSIS
     Dosage: 0.5 MG, QD
     Route: 048
     Dates: start: 20121109
  2. ELTHYRONE [Concomitant]
  3. PARACETAMOL [Concomitant]
     Indication: PAIN

REACTIONS (3)
  - Nephrolithiasis [Recovered/Resolved]
  - Ureteric dilatation [Recovered/Resolved]
  - Back pain [Recovered/Resolved]
